FAERS Safety Report 9693255 (Version 1)
Quarter: 2013Q4

REPORT INFORMATION
  Report Type: Spontaneous
  Country: US (occurrence: US)
  Receive Date: 20131118
  Receipt Date: 20131118
  Transmission Date: 20140711
  Serious: No
  Sender: FDA-Public Use
  Company Number: US-BAYER-2013-140804

PATIENT
  Age: 83 Year
  Sex: Female
  Weight: 65.76 kg

DRUGS (3)
  1. ALEVE CAPLET [Suspect]
     Route: 048
  2. BABY ASPIRIN [Concomitant]
  3. METHIMAZOLE [Concomitant]

REACTIONS (1)
  - Extra dose administered [None]
